FAERS Safety Report 6393036-5 (Version None)
Quarter: 2009Q4

REPORT INFORMATION
  Report Type: 
  Country: None (occurrence: None)
  Receive Date: 20091008
  Receipt Date: 20090928
  Transmission Date: 20100525
  Serious: Yes (Congenital Anomaly)
  Sender: FDA-Public Use
  Company Number: FR-RANBAXY-2009RR-28301

PATIENT
  Sex: Female

DRUGS (5)
  1. TOPIRAMATE [Suspect]
     Indication: EPILEPSY
     Dosage: 1 G, QD
     Route: 015
  2. LAMOTRIGINE [Suspect]
     Indication: EPILEPSY
     Route: 015
  3. CLONAZEPAM [Suspect]
     Indication: EPILEPSY
     Route: 015
  4. OXCARBAZEPINE [Suspect]
     Indication: EPILEPSY
     Route: 015
  5. FOLIC ACID [Concomitant]
     Indication: EPILEPSY
     Route: 015

REACTIONS (5)
  - BONE ATROPHY [None]
  - HEAD DEFORMITY [None]
  - LOW SET EARS [None]
  - MICROTIA [None]
  - RETROGNATHIA [None]
